FAERS Safety Report 8555197-9 (Version None)
Quarter: 2012Q3

REPORT INFORMATION
  Report Type: 
  Country: None (occurrence: None)
  Receive Date: 20120731
  Receipt Date: 20120522
  Transmission Date: 20120928
  Serious: No
  Sender: FDA-Public Use
  Company Number: US-009507513-1207USA008846

PATIENT

DRUGS (4)
  1. RIBAVIRIN [Suspect]
     Indication: HEPATITIS C
     Dosage: UNK
     Route: 048
     Dates: start: 20120109
  2. STUDY DRUG (UNSPECIFIED) [Suspect]
     Dosage: UNK
     Dates: start: 20120109, end: 20120206
  3. PEGINTERFERON ALFA-2A [Suspect]
     Indication: HEPATITIS C
     Dosage: UNK
     Route: 048
     Dates: start: 20120109
  4. STUDY DRUG (UNSPECIFIED) [Suspect]
     Indication: HEPATITIS C
     Dosage: UNK
     Dates: start: 20120109, end: 20120206

REACTIONS (1)
  - OVERDOSE [None]
